FAERS Safety Report 5541588-7 (Version None)
Quarter: 2007Q4

REPORT INFORMATION
  Report Type: 
  Country: None (occurrence: None)
  Receive Date: 20071210
  Receipt Date: 20071204
  Transmission Date: 20080405
  Serious: Yes (Hospitalization)
  Sender: FDA-Public Use
  Company Number: FR-AVENTIS-200713907FR

PATIENT
  Age: 50 Year
  Sex: Male

DRUGS (5)
  1. TAXOTERE [Suspect]
     Route: 042
     Dates: start: 20071113, end: 20071113
  2. FLUOROURACIL [Concomitant]
  3. ZYLORIC [Concomitant]
     Indication: DRUG USE FOR UNKNOWN INDICATION
  4. NEUPOGEN [Concomitant]
  5. CISPLATIN [Concomitant]

REACTIONS (1)
  - PROTHROMBIN LEVEL DECREASED [None]
